FAERS Safety Report 4942928-X (Version None)
Quarter: 2006Q1

REPORT INFORMATION
  Report Type: 
  Country: None (occurrence: None)
  Receive Date: 20060309
  Receipt Date: 20060222
  Transmission Date: 20060701
  Serious: Yes (Hospitalization)
  Sender: FDA-Public Use
  Company Number: DE-SHR-04-022315

PATIENT
  Age: 52 Year
  Sex: Male

DRUGS (6)
  1. INTERFERON BETA-1B UNBLINDED (BETAFERON (SH Y 579E)) INJECTION, 250UG [Suspect]
     Indication: CARDIOMYOPATHY
     Dosage: 4 MIU, EVERY 2D, SUBCUTANEOUS
     Route: 058
     Dates: start: 20040225
  2. ENALAPRIL MALEATE [Concomitant]
  3. TORSEMIDE [Concomitant]
  4. BISOPROLOL (BISOPROLOL) [Concomitant]
  5. FLUVASTATIN (FLUVASTATIN) [Concomitant]
  6. PANTOPRAZOLE SODIUM [Concomitant]

REACTIONS (2)
  - CHEST PAIN [None]
  - NAIL INFECTION [None]
